FAERS Safety Report 6717385-3 (Version None)
Quarter: 2010Q2

REPORT INFORMATION
  Report Type: 
  Country: None (occurrence: None)
  Receive Date: 20100505
  Receipt Date: 20100429
  Transmission Date: 20101027
  Serious: Yes (Other)
  Sender: FDA-Public Use
  Company Number: 2010SP022692

PATIENT
  Age: 49 Year
  Sex: Male

DRUGS (6)
  1. NASONEX [Suspect]
     Indication: NASAL POLYPS
     Dosage: NAS
     Route: 045
     Dates: start: 20070701, end: 20090901
  2. RHINOCORT [Concomitant]
  3. PREDNISOLONE [Concomitant]
  4. BETAMETHASONE [Concomitant]
  5. CORTICOID [Concomitant]
  6. NASACORT [Concomitant]

REACTIONS (1)
  - OSTEONECROSIS [None]
